FAERS Safety Report 6348929-1 (Version None)
Quarter: 2009Q3

REPORT INFORMATION
  Report Type: 
  Country: None (occurrence: None)
  Receive Date: 20090911
  Receipt Date: 20090901
  Transmission Date: 20100115
  Serious: Yes (Other)
  Sender: FDA-Public Use
  Company Number: BR-JNJFOC-20090807151

PATIENT
  Sex: Male
  Weight: 60 kg

DRUGS (1)
  1. REMICADE [Suspect]
     Indication: PSORIASIS
     Route: 042

REACTIONS (4)
  - BLOOD UREA INCREASED [None]
  - MYOSITIS [None]
  - RED BLOOD CELLS URINE POSITIVE [None]
  - WHITE BLOOD CELLS URINE POSITIVE [None]
